FAERS Safety Report 17445110 (Version 1)
Quarter: 2020Q1

REPORT INFORMATION
  Report Type: Spontaneous
  Country: US (occurrence: US)
  Receive Date: 20200221
  Receipt Date: 20200221
  Transmission Date: 20200409
  Serious: No
  Sender: FDA-Public Use
  Company Number: US-PFIZER INC-2020076795

PATIENT
  Sex: Female

DRUGS (1)
  1. PREGABALIN. [Suspect]
     Active Substance: PREGABALIN
     Dosage: 450 MG, DAILY

REACTIONS (4)
  - Sleep disorder [Unknown]
  - Oropharyngeal pain [Unknown]
  - Arthralgia [Unknown]
  - Vision blurred [Unknown]
